FAERS Safety Report 17107581 (Version 1)
Quarter: 2019Q4

REPORT INFORMATION
  Report Type: Spontaneous
  Country: JP (occurrence: JP)
  Receive Date: 20191204
  Receipt Date: 20191204
  Transmission Date: 20200122
  Serious: Yes (Life-Threatening, Hospitalization, Other)
  Sender: FDA-Public Use
  Company Number: JP-LUPIN PHARMACEUTICALS INC.-2019-07961

PATIENT
  Age: 38 Year
  Sex: Female

DRUGS (1)
  1. METOCLOPRAMIDE. [Suspect]
     Active Substance: METOCLOPRAMIDE
     Indication: NAUSEA
     Dosage: 10 MILLIGRAM
     Route: 042
     Dates: start: 2017

REACTIONS (4)
  - Cardiac failure acute [Recovering/Resolving]
  - Cardiac arrest [Recovering/Resolving]
  - Phaeochromocytoma crisis [Recovered/Resolved]
  - Cardiogenic shock [Recovering/Resolving]

NARRATIVE: CASE EVENT DATE: 2017
